FAERS Safety Report 5105619-0 (Version None)
Quarter: 2006Q3

REPORT INFORMATION
  Report Type: 
  Country: None (occurrence: None)
  Receive Date: 20060915
  Receipt Date: 20060912
  Transmission Date: 20061208
  Serious: Yes (Death)
  Sender: FDA-Public Use
  Company Number: US-JNJFOC-20060903208

PATIENT
  Sex: Female
  Weight: 77.11 kg

DRUGS (2)
  1. ULTRAM [Suspect]
     Indication: ARTHRITIS
     Route: 048
  2. ADVAIR DISKUS 100/50 [Concomitant]
     Indication: CHRONIC OBSTRUCTIVE PULMONARY DISEASE
     Route: 055

REACTIONS (1)
  - MYOCARDIAL INFARCTION [None]
